FAERS Safety Report 7588719-5 (Version None)
Quarter: 2011Q3

REPORT INFORMATION
  Report Type: 
  Country: None (occurrence: None)
  Receive Date: 20110705
  Receipt Date: 20110610
  Transmission Date: 20111222
  Serious: Yes (Other)
  Sender: FDA-Public Use
  Company Number: US-BAYER-2011-024500

PATIENT
  Sex: Female
  Weight: 65 kg

DRUGS (4)
  1. NORCO [Concomitant]
     Dosage: UNK
     Dates: start: 20090301
  2. PHENERGAN HCL [Concomitant]
     Dosage: UNK
     Dates: start: 20090301
  3. DEPO-PROVERA [Concomitant]
     Dosage: 150 MG, UNK
     Route: 030
  4. YAZ [Suspect]
     Indication: CONTRACEPTION
     Dosage: UNK
     Dates: start: 20080101, end: 20100101

REACTIONS (4)
  - PAIN [None]
  - INJURY [None]
  - CHOLECYSTITIS CHRONIC [None]
  - CHOLELITHIASIS [None]
